FAERS Safety Report 12419889 (Version 2)
Quarter: 2016Q3

REPORT INFORMATION
  Report Type: Report from Study
  Country: DE (occurrence: DE)
  Receive Date: 20160531
  Receipt Date: 20160901
  Transmission Date: 20161109
  Serious: Yes (Other)
  Sender: FDA-Public Use
  Company Number: DE-BAYER-2016-100770

PATIENT
  Sex: Male
  Weight: 75 kg

DRUGS (9)
  1. RADIUM-223 DICHLORIDE [Suspect]
     Active Substance: RADIUM RA-223 DICHLORIDE
     Indication: PROSTATE CANCER METASTATIC
     Dosage: DAILY DOSE 4484 KBQ
     Route: 042
     Dates: start: 20140103, end: 20140103
  2. XGEVA [Concomitant]
     Active Substance: DENOSUMAB
     Indication: METASTASES TO BONE
     Dosage: DAILY DOSE 120 MG
     Route: 058
     Dates: start: 20140526
  3. RADIUM-223 DICHLORIDE [Suspect]
     Active Substance: RADIUM RA-223 DICHLORIDE
     Indication: PROSTATE CANCER METASTATIC
     Dosage: DAILY DOSE 4336 KBQ
     Route: 042
     Dates: start: 20140131, end: 20140131
  4. XGEVA [Concomitant]
     Active Substance: DENOSUMAB
     Indication: METASTASES TO BONE
     Dosage: 120MG EVERY 4 WEEKS
     Dates: start: 20121008, end: 20160504
  5. RADIUM-223 DICHLORIDE [Suspect]
     Active Substance: RADIUM RA-223 DICHLORIDE
     Indication: PROSTATE CANCER METASTATIC
     Dosage: 4405 KBQ
     Route: 042
     Dates: start: 20140304
  6. RADIUM-223 DICHLORIDE [Suspect]
     Active Substance: RADIUM RA-223 DICHLORIDE
     Indication: PROSTATE CANCER METASTATIC
     Dosage: DAILY DOSE 4436 KBQ
     Route: 042
     Dates: start: 20131008, end: 20131008
  7. RADIUM-223 DICHLORIDE [Suspect]
     Active Substance: RADIUM RA-223 DICHLORIDE
     Indication: PROSTATE CANCER METASTATIC
     Dosage: DAILY DOSE 4520 KBQ
     Route: 042
     Dates: start: 20131105, end: 20131105
  8. RADIUM-223 DICHLORIDE [Suspect]
     Active Substance: RADIUM RA-223 DICHLORIDE
     Indication: PROSTATE CANCER METASTATIC
     Dosage: DAILY DOSE 4435 KBQ
     Route: 042
     Dates: start: 20131204, end: 20131204
  9. INEGY [Concomitant]
     Active Substance: EZETIMIBE\SIMVASTATIN
     Indication: HYPERLIPIDAEMIA
     Dosage: 10/40 MG DAILY
     Dates: start: 2008

REACTIONS (1)
  - Acute myeloid leukaemia [Not Recovered/Not Resolved]

NARRATIVE: CASE EVENT DATE: 20160520
